FAERS Safety Report 4544290-3 (Version None)
Quarter: 2004Q4

REPORT INFORMATION
  Report Type: 
  Country: None (occurrence: None)
  Receive Date: 20041230
  Receipt Date: 20041216
  Transmission Date: 20050328
  Serious: Yes (Hospitalization)
  Sender: FDA-Public Use
  Company Number: DSA_25431_2004

PATIENT
  Age: 84 Year
  Sex: Female

DRUGS (3)
  1. TILDIEM [Suspect]
     Indication: HYPERTENSION
     Dosage: 200 MG Q DAY PO
     Route: 048
     Dates: start: 20041012, end: 20041020
  2. FUROSEMIDE [Concomitant]
  3. MOTILIUMC [Concomitant]

REACTIONS (1)
  - TOXIC SKIN ERUPTION [None]
